FAERS Safety Report 25458397 (Version 1)
Quarter: 2025Q2

REPORT INFORMATION
  Report Type: Spontaneous
  Country: GB (occurrence: GB)
  Receive Date: 20250620
  Receipt Date: 20250620
  Transmission Date: 20250717
  Serious: Yes (Disabling)
  Sender: CELLTRION
  Company Number: GB-CELLTRION INC.-2025GB019031

PATIENT

DRUGS (1)
  1. YUFLYMA [Suspect]
     Active Substance: ADALIMUMAB-AATY
     Indication: Ankylosing spondylitis
     Route: 058

REACTIONS (2)
  - Malaise [Unknown]
  - Therapy interrupted [Unknown]
